FAERS Safety Report 7546764-X (Version None)
Quarter: 2011Q2

REPORT INFORMATION
  Report Type: 
  Country: None (occurrence: None)
  Receive Date: 20110614
  Receipt Date: 20110606
  Transmission Date: 20111010
  Serious: Yes (Other)
  Sender: FDA-Public Use
  Company Number: B0726024A

PATIENT
  Age: 42 Year
  Sex: Female
  Weight: 64 kg

DRUGS (3)
  1. VALACYCLOVIR HYDROCHLORIDE [Suspect]
     Indication: HERPES ZOSTER
     Dosage: 1000MG THREE TIMES PER DAY
     Route: 065
  2. CERAZETTE [Concomitant]
     Indication: CONTRACEPTION
  3. VOLTAREN [Concomitant]
     Indication: NEURALGIA

REACTIONS (1)
  - MENSTRUAL DISORDER [None]
